FAERS Safety Report 14580209 (Version 2)
Quarter: 2019Q1

REPORT INFORMATION
  Report Type: Spontaneous
  Country: PL (occurrence: PL)
  Receive Date: 20180228
  Receipt Date: 20190319
  Transmission Date: 20190417
  Serious: Yes (Death, Other)
  Sender: FDA-Public Use
  Company Number: PL-ROCHE-2074660

PATIENT
  Age: 47 Year
  Sex: Male

DRUGS (2)
  1. PEG-INTERFERON ALFA 2A [Suspect]
     Active Substance: PEGINTERFERON ALFA-2A
     Indication: HEPATITIS CHOLESTATIC
     Dosage: UNK
     Route: 065
     Dates: start: 20110213
  2. RIBAVIRIN. [Suspect]
     Active Substance: RIBAVIRIN
     Indication: HEPATITIS C
     Dosage: UNK
     Route: 048
     Dates: start: 20110213

REACTIONS (7)
  - Hepatic fibrosis [Fatal]
  - Cholangitis [Fatal]
  - Hepatitis cholestatic [Fatal]
  - Hepatitis C [Fatal]
  - Drug ineffective [Unknown]
  - Ascites [Fatal]
  - Hepatic failure [Fatal]
